FAERS Safety Report 8836869 (Version 2)
Quarter: 2013Q1

REPORT INFORMATION
  Report Type: Spontaneous
  Country: US (occurrence: None)
  Receive Date: 20121010
  Receipt Date: 20130129
  Transmission Date: 20140127
  Serious: Yes (Other)
  Sender: FDA-Public Use
  Company Number: ACO_32263_2012

PATIENT
  Age: 58 Year
  Sex: Female
  Weight: 62.6 kg

DRUGS (15)
  1. AMPYRA [Suspect]
     Route: 048
     Dates: start: 20120924, end: 20120927
  2. LISINOPRIL (LISINOPRIL) [Concomitant]
  3. ATENOLOL (ATENOLOL) [Concomitant]
  4. LORATIDINE [Concomitant]
  5. BETASERON (ALBUMIN HUMAN, GLUCOSE, INTERFERON BETA) [Concomitant]
  6. MULTIVITAMIN WITH IRON (VITAMINS NOS) [Concomitant]
  7. VITAMIN B12 (CYANOCOBALAMIN) [Concomitant]
  8. TIZANIDINE HYDROCHLORIDE (TIZANIDINE HYDROCHLORIDE) [Concomitant]
  9. JANUMET (METFORMIN HYDROCHLORIDE, SITAGLIPTIN PHOSPHATE MONOHYDRATE) [Concomitant]
  10. JANUMET (METFORMIN HYDROCHLORIDE, SITAGLIPTIN PHOSPHATE MONOHYDRATE) [Concomitant]
  11. VYTORIN (EZETIMIBE, SIMVASTATIN) [Concomitant]
  12. HYDROCHLOROTHIAZIDE (HYDROCHLOROTHIAZIDE) [Concomitant]
  13. GLIPIZIDE (GLOIPIZIDE) [Concomitant]
  14. ACTOS (PIOGLITAZONE HYDROCHLORIDE) [Concomitant]
  15. LYRICA (PREGABALIN) [Concomitant]

REACTIONS (1)
  - Blood glucose increased [None]
